FAERS Safety Report 8981412 (Version 1)
Quarter: 2012Q4

REPORT INFORMATION
  Report Type: 
  Country: US (occurrence: US)
  Receive Date: 20121221
  Receipt Date: 20121221
  Transmission Date: 20130627
  Serious: No
  Sender: FDA-Public Use
  Company Number: US-PFIZER INC-2012320456

PATIENT
  Age: 62 Year
  Sex: Female
  Weight: 50.34 kg

DRUGS (2)
  1. VFEND [Suspect]
     Indication: COCCIDIOIDOMYCOSIS
     Dosage: 200 mg, 2x/day
     Route: 048
     Dates: start: 20121204
  2. HUMIRA [Concomitant]
     Indication: ULCERATIVE COLITIS
     Dosage: every alternate week

REACTIONS (2)
  - Depression [Not Recovered/Not Resolved]
  - Ocular icterus [Unknown]
